FAERS Safety Report 17386015 (Version 2)
Quarter: 2024Q1

REPORT INFORMATION
  Report Type: Spontaneous
  Country: IT (occurrence: IT)
  Receive Date: 20200206
  Receipt Date: 20240112
  Transmission Date: 20240410
  Serious: Yes (Other)
  Sender: FDA-Public Use
  Company Number: IT-LAT-20129249123OV

PATIENT
  Age: 49 Year
  Sex: Female

DRUGS (2)
  1. REMICADE [Suspect]
     Active Substance: INFLIXIMAB
     Indication: Fibromyalgia
     Route: 041
     Dates: start: 201507, end: 2016
  2. REMICADE [Suspect]
     Active Substance: INFLIXIMAB
     Indication: Psoriatic arthropathy

REACTIONS (1)
  - Lichen planus [Recovering/Resolving]

NARRATIVE: CASE EVENT DATE: 20160601
